FAERS Safety Report 5699482-7 (Version None)
Quarter: 2008Q2

REPORT INFORMATION
  Report Type: 
  Country: None (occurrence: None)
  Receive Date: 20080410
  Receipt Date: 20080310
  Transmission Date: 20081010
  Serious: No
  Sender: FDA-Public Use
  Company Number: US-BAYER-200812978NA

PATIENT
  Sex: Female

DRUGS (1)
  1. YAZ [Suspect]
     Route: 048
     Dates: start: 20080129

REACTIONS (1)
  - INFLUENZA LIKE ILLNESS [None]
